FAERS Safety Report 6800633-9 (Version None)
Quarter: 2010Q2

REPORT INFORMATION
  Report Type: 
  Country: None (occurrence: None)
  Receive Date: 20100625
  Receipt Date: 20100625
  Transmission Date: 20101027
  Serious: Yes (Hospitalization)
  Sender: FDA-Public Use
  Company Number: None

PATIENT
  Sex: Female
  Weight: 63.1 kg

DRUGS (1)
  1. GABAPENTIN [Suspect]
     Dosage: 100 MG TID PO
     Route: 048
     Dates: start: 20100301, end: 20100304

REACTIONS (4)
  - CYANOSIS [None]
  - DYSPNOEA [None]
  - HYPOXIA [None]
  - TACHYCARDIA [None]
